FAERS Safety Report 7486955-X (Version None)
Quarter: 2011Q2

REPORT INFORMATION
  Report Type: 
  Country: None (occurrence: None)
  Receive Date: 20110517
  Receipt Date: 20110510
  Transmission Date: 20111010
  Serious: Yes (Hospitalization, Other)
  Sender: FDA-Public Use
  Company Number: US-RB-020495-11

PATIENT
  Age: 23 Year
  Sex: Male

DRUGS (2)
  1. SUBOXONE [Suspect]
     Indication: PRODUCT USED FOR UNKNOWN INDICATION
     Dosage: DOSAGE INFORMATION UNKNOWN
     Route: 065
  2. SUBOXONE [Suspect]
     Indication: PRODUCT USED FOR UNKNOWN INDICATION
     Dosage: DOSING INFORMATION UNKNOWN- SUBLINGUAL FILM
     Route: 065

REACTIONS (5)
  - INTENTIONAL OVERDOSE [None]
  - EUPHORIC MOOD [None]
  - SUICIDAL IDEATION [None]
  - ADVERSE EVENT [None]
  - DRUG DEPENDENCE [None]
